FAERS Safety Report 4413980-5 (Version None)
Quarter: 2004Q3

REPORT INFORMATION
  Report Type: 
  Country: None (occurrence: None)
  Receive Date: 20040728
  Receipt Date: 20040719
  Transmission Date: 20050211
  Serious: Yes (Death, Other)
  Sender: FDA-Public Use
  Company Number: 2004040465

PATIENT
  Age: 18 Year
  Sex: Female

DRUGS (4)
  1. NORVASC [Suspect]
     Indication: ILL-DEFINED DISORDER
     Dosage: 150 MG (5 MG, 1 IN 1 D) ORAL
     Route: 048
     Dates: start: 20040615
  2. ALL OTHER THERAPEUTIC PRODUCTS (ALL OTHER THERAPEUTIC PRODUCTS) [Suspect]
     Indication: ILL-DEFINED DISORDER
     Dosage: (1 IN 1 D, ORAL)
     Route: 048
     Dates: start: 20040615
  3. ANTIHISTAMINES (ANTIHISTAMINES) [Suspect]
     Indication: ILL-DEFINED DISORDER
     Dosage: (1 IN 1 D) ORAL
     Route: 048
     Dates: start: 20040615
  4. ANALGESICS (ANALGESICS) [Suspect]
     Dosage: (1 IN 1 D), ORAL
     Route: 048
     Dates: start: 20040615

REACTIONS (7)
  - CARDIAC ARREST [None]
  - CARDIAC FAILURE [None]
  - COMPLETED SUICIDE [None]
  - HYPOTENSION [None]
  - INTENTIONAL OVERDOSE [None]
  - SHOCK [None]
  - VASODILATATION [None]
